FAERS Safety Report 24123343 (Version 2)
Quarter: 2024Q3

REPORT INFORMATION
  Report Type: Spontaneous
  Country: US (occurrence: US)
  Receive Date: 20240723
  Receipt Date: 20240808
  Transmission Date: 20241016
  Serious: No
  Sender: OTSUKA
  Company Number: US-OTSUKA-2023_025607

PATIENT
  Age: 42 Year
  Sex: Female
  Weight: 58.97 kg

DRUGS (5)
  1. ARIPIPRAZOLE [Suspect]
     Active Substance: ARIPIPRAZOLE
     Indication: Depression
     Dosage: 2 MG
     Route: 065
     Dates: start: 202304
  2. REXULTI [Suspect]
     Active Substance: BREXPIPRAZOLE
     Indication: Depression
     Dosage: 0.5 MG
     Route: 065
     Dates: start: 20230924
  3. WELLBUTRIN [Suspect]
     Active Substance: BUPROPION HYDROCHLORIDE
     Indication: Depression
     Dosage: 200 MG, QD
     Route: 065
  4. BUPROPION HYDROCHLORIDE [Concomitant]
     Active Substance: BUPROPION HYDROCHLORIDE
     Indication: Product used for unknown indication
     Dosage: 200 MG, QD
     Route: 065
  5. ADDERALL [Concomitant]
     Active Substance: AMPHETAMINE ASPARTATE\AMPHETAMINE SULFATE\DEXTROAMPHETAMINE SACCHARATE\DEXTROAMPHETAMINE SULFATE
     Indication: Attention deficit hyperactivity disorder
     Dosage: AS NEEDED
     Route: 065

REACTIONS (11)
  - Loss of personal independence in daily activities [Unknown]
  - Impaired driving ability [Unknown]
  - Adverse drug reaction [Unknown]
  - Middle insomnia [Unknown]
  - Hunger [Not Recovered/Not Resolved]
  - Feeling abnormal [Unknown]
  - Depression [Unknown]
  - Increased appetite [Not Recovered/Not Resolved]
  - Weight increased [Unknown]
  - Anxiety [Unknown]
  - Inability to afford medication [Unknown]

NARRATIVE: CASE EVENT DATE: 20230924
